FAERS Safety Report 7388687-5 (Version None)
Quarter: 2011Q2

REPORT INFORMATION
  Report Type: 
  Country: None (occurrence: None)
  Receive Date: 20110401
  Receipt Date: 20110328
  Transmission Date: 20111010
  Serious: Yes (Hospitalization)
  Sender: FDA-Public Use
  Company Number: PT-MEDIMMUNE-MEDI-0012961

PATIENT
  Sex: Male

DRUGS (3)
  1. SYNAGIS [Suspect]
     Route: 030
     Dates: start: 20101022, end: 20101122
  2. VENTILAN [Concomitant]
     Route: 055
  3. SYNAGIS [Suspect]
     Route: 030
     Dates: start: 20101220, end: 20110124

REACTIONS (3)
  - ADENOVIRUS INFECTION [None]
  - RESPIRATORY SYNCYTIAL VIRUS INFECTION [None]
  - RESPIRATORY SYNCYTIAL VIRUS BRONCHIOLITIS [None]
